FAERS Safety Report 7267000-8 (Version None)
Quarter: 2011Q1

REPORT INFORMATION
  Report Type: 
  Country: None (occurrence: None)
  Receive Date: 20110201
  Receipt Date: 20110126
  Transmission Date: 20110831
  Serious: Yes (Life-Threatening)
  Sender: FDA-Public Use
  Company Number: JP-JNJFOC-20110106264

PATIENT
  Age: 77 Year
  Sex: Female

DRUGS (4)
  1. HUMULIN R [Concomitant]
     Indication: DIABETES MELLITUS
     Route: 050
  2. NORVASC [Concomitant]
     Route: 048
  3. DOXIL [Suspect]
     Indication: OVARIAN CANCER RECURRENT
     Route: 042
  4. DOXIL [Suspect]
     Route: 042

REACTIONS (1)
  - INTERSTITIAL LUNG DISEASE [None]
